FAERS Safety Report 17284202 (Version 1)
Quarter: 2020Q1

REPORT INFORMATION
  Report Type: Spontaneous
  Country: US (occurrence: US)
  Receive Date: 20200117
  Receipt Date: 20200117
  Transmission Date: 20200409
  Serious: Yes (Other)
  Sender: FDA-Public Use
  Company Number: US-JACOBUS PHARMACEUTICAL COMPANY, INC.-2079132

PATIENT
  Age: 62 Year
  Sex: Male

DRUGS (5)
  1. DAPSONE. [Suspect]
     Active Substance: DAPSONE
  2. LOSARTAN POTASSIUM. [Concomitant]
     Active Substance: LOSARTAN POTASSIUM
  3. RITUXAN [Concomitant]
     Active Substance: RITUXIMAB
  4. PEPCID [Concomitant]
     Active Substance: FAMOTIDINE
  5. TOLVAPTAN (JYNARQUE) [Suspect]
     Active Substance: TOLVAPTAN
     Dates: start: 20180822, end: 20190502

REACTIONS (3)
  - Blindness unilateral [Unknown]
  - Hyperglycaemia [Not Recovered/Not Resolved]
  - Intraocular pressure increased [Unknown]

NARRATIVE: CASE EVENT DATE: 20190502
